FAERS Safety Report 4515384-3 (Version None)
Quarter: 2004Q4

REPORT INFORMATION
  Report Type: 
  Country: None (occurrence: None)
  Receive Date: 20041129
  Receipt Date: 20040829
  Transmission Date: 20050328
  Serious: No
  Sender: FDA-Public Use
  Company Number: 200416518US

PATIENT
  Age: 29 Year
  Sex: Female
  Weight: 52 kg

DRUGS (4)
  1. KETEK [Suspect]
     Indication: SINUSITIS
     Dosage: 400 MG BID
     Dates: start: 20040818, end: 20040822
  2. ETHINYLESTREDIOL, NRGESTIMATE (ORTHO-TRI-CYCLEN) [Concomitant]
  3. DEPAKOTE [Concomitant]
  4. ALLEGRA [Concomitant]

REACTIONS (1)
  - RASH [None]
